FAERS Safety Report 7490241-1 (Version None)
Quarter: 2011Q2

REPORT INFORMATION
  Report Type: 
  Country: None (occurrence: None)
  Receive Date: 20110519
  Receipt Date: 20110516
  Transmission Date: 20111010
  Serious: No
  Sender: FDA-Public Use
  Company Number: US-PFIZER INC-2011105727

PATIENT
  Sex: Female

DRUGS (2)
  1. PREDNISONE [Suspect]
     Dosage: UNK
  2. MEDROL [Suspect]
     Dosage: UNK

REACTIONS (4)
  - NERVOUSNESS [None]
  - PALPITATIONS [None]
  - DISCOMFORT [None]
  - MOOD ALTERED [None]
